FAERS Safety Report 6578069-8 (Version None)
Quarter: 2010Q1

REPORT INFORMATION
  Report Type: 
  Country: None (occurrence: None)
  Receive Date: 20100211
  Receipt Date: 20100203
  Transmission Date: 20100710
  Serious: Yes (Other)
  Sender: FDA-Public Use
  Company Number: GB-JNJCH-2010002822

PATIENT
  Sex: Female

DRUGS (2)
  1. NICORETTE INVISI PATCH [Suspect]
     Indication: SMOKING CESSATION THERAPY
     Dosage: TEXT:25 MG - UNSPECIFIED
     Route: 062
     Dates: start: 20100103, end: 20100123
  2. NICORETTE INVISI PATCH [Suspect]
     Dosage: TEXT:15 MG - UNSPECIFIED
     Route: 062
     Dates: start: 20100125, end: 20100125

REACTIONS (12)
  - APPLICATION SITE BLEEDING [None]
  - APPLICATION SITE BURN [None]
  - APPLICATION SITE DISCOLOURATION [None]
  - APPLICATION SITE ERYTHEMA [None]
  - APPLICATION SITE HAEMATOMA [None]
  - APPLICATION SITE IRRITATION [None]
  - APPLICATION SITE PAIN [None]
  - APPLICATION SITE PRURITUS [None]
  - APPLICATION SITE VESICLES [None]
  - GENERALISED ERYTHEMA [None]
  - PRURITUS GENERALISED [None]
  - URTICARIA [None]
